FAERS Safety Report 4951769-9 (Version None)
Quarter: 2006Q1

REPORT INFORMATION
  Report Type: 
  Country: None (occurrence: None)
  Receive Date: 20060322
  Receipt Date: 20060322
  Transmission Date: 20060701
  Serious: Yes (Life-Threatening)
  Sender: FDA-Public Use
  Company Number: None

PATIENT
  Age: 35 Year
  Sex: Male

DRUGS (7)
  1. HYDROMORPHONE HCL [Suspect]
     Indication: ABDOMINAL PAIN
     Dosage: 1-2 MG AS NEEDED IV BOLUS
     Route: 040
     Dates: start: 20060321, end: 20060321
  2. MORPHINE [Suspect]
     Indication: ABDOMINAL PAIN
     Dosage: 2 MG AS NEEDED IV BOLUS
     Route: 040
     Dates: start: 20060321, end: 20060321
  3. ESOMEPRAZOLE [Concomitant]
  4. OLMESATAN [Concomitant]
  5. MEDOXOMIL/HYDROCHLOROTHIAZIDE [Concomitant]
  6. ALBUTEROL [Concomitant]
  7. ESCITALOPRAM OXALATE [Concomitant]

REACTIONS (4)
  - APNOEA [None]
  - CYANOSIS [None]
  - DEPRESSED LEVEL OF CONSCIOUSNESS [None]
  - RESPIRATORY ARREST [None]
